FAERS Safety Report 9086916 (Version 1)
Quarter: 2013Q1

REPORT INFORMATION
  Report Type: Report from Study
  Country: US (occurrence: US)
  Receive Date: 20130131
  Receipt Date: 20130131
  Transmission Date: 20140127
  Serious: No
  Sender: FDA-Public Use
  Company Number: US-ABBOTT-12P-163-0978454-00

PATIENT
  Age: 70 Year
  Sex: Female

DRUGS (14)
  1. HUMIRA [Suspect]
     Indication: CROHN^S DISEASE
     Dates: start: 20120827, end: 20120827
  2. HUMIRA [Suspect]
     Dates: start: 20120910, end: 20120910
  3. HUMIRA [Suspect]
     Dates: end: 20121022
  4. CLONAZEPAM [Concomitant]
     Indication: FIBROMYALGIA
     Dosage: AT BEDTIME
  5. CLONAZEPAM [Concomitant]
     Indication: RESTLESS LEGS SYNDROME
  6. CYCLOBENZAPRINE [Concomitant]
     Indication: FIBROMYALGIA
     Dosage: ONE AT BEDTIME
  7. PRILOSEC [Concomitant]
     Indication: PRODUCT USED FOR UNKNOWN INDICATION
     Dosage: ONE EACH MORNING
  8. OMEGA 3 [Concomitant]
     Indication: PRODUCT USED FOR UNKNOWN INDICATION
  9. CYMBALTA [Concomitant]
     Indication: BACK PAIN
  10. CALCIUM WITH VITAMIN D [Concomitant]
     Indication: PRODUCT USED FOR UNKNOWN INDICATION
  11. CENTRUM SILVER [Concomitant]
     Indication: PRODUCT USED FOR UNKNOWN INDICATION
  12. MAGNESIUM [Concomitant]
     Indication: PRODUCT USED FOR UNKNOWN INDICATION
  13. VITAMIN D [Concomitant]
     Indication: PRODUCT USED FOR UNKNOWN INDICATION
  14. CULTURELLE [Concomitant]
     Indication: PRODUCT USED FOR UNKNOWN INDICATION

REACTIONS (10)
  - Red blood cell count abnormal [Not Recovered/Not Resolved]
  - Blood potassium decreased [Not Recovered/Not Resolved]
  - Diarrhoea [Not Recovered/Not Resolved]
  - Diarrhoea [Not Recovered/Not Resolved]
  - Diarrhoea [Unknown]
  - Inflammation [Unknown]
  - Fatigue [Unknown]
  - Hypersomnia [Unknown]
  - Abdominal discomfort [Unknown]
  - Diarrhoea [Unknown]
